FAERS Safety Report 5237492-4 (Version None)
Quarter: 2007Q1

REPORT INFORMATION
  Report Type: 
  Country: None (occurrence: None)
  Receive Date: 20070213
  Receipt Date: 20070205
  Transmission Date: 20070707
  Serious: Yes (Hospitalization)
  Sender: FDA-Public Use
  Company Number: JP-PFIZER INC-2007010296

PATIENT
  Age: 74 Year
  Sex: Female

DRUGS (6)
  1. ZOLOFT [Suspect]
     Indication: DEPRESSION
     Dosage: DAILY DOSE:50MG
     Route: 048
  2. DOGMATYL [Suspect]
     Indication: ANOREXIA
     Dosage: DAILY DOSE:50MG
     Route: 048
     Dates: start: 20060801
  3. GASMOTIN [Suspect]
     Indication: NAUSEA
     Dosage: DAILY DOSE:15MG
     Route: 048
  4. TOFRANIL [Concomitant]
     Indication: DEPRESSION
     Dosage: DAILY DOSE:12.5MG
     Route: 048
     Dates: start: 20060101, end: 20070115
  5. LEXOTAN [Concomitant]
     Route: 048
     Dates: start: 20060901
  6. ALL OTHER THERAPEUTIC PRODUCTS [Concomitant]
     Dates: start: 20060901, end: 20070202

REACTIONS (2)
  - HYPOKALAEMIA [None]
  - HYPOTHYROIDISM [None]
